FAERS Safety Report 5423082-7 (Version None)
Quarter: 2007Q3

REPORT INFORMATION
  Report Type: 
  Country: None (occurrence: None)
  Receive Date: 20070821
  Receipt Date: 20070807
  Transmission Date: 20080115
  Serious: Yes (Hospitalization)
  Sender: FDA-Public Use
  Company Number: CERZ-11833

PATIENT
  Sex: Female

DRUGS (3)
  1. CEREZYME [Suspect]
     Indication: GAUCHER'S DISEASE
     Dosage: 60 U/KG Q2WKS IV
     Route: 042
     Dates: start: 19990830
  2. CEREZYME [Suspect]
     Indication: GAUCHER'S DISEASE
     Dosage: 45 U/KG IV
     Route: 042
     Dates: start: 19990802, end: 19990801
  3. CEREZYME [Suspect]
     Indication: GAUCHER'S DISEASE
     Dosage: 30 U/KG IV
     Route: 042
     Dates: start: 19970428, end: 19990701

REACTIONS (10)
  - CHOLESTEATOMA [None]
  - CONDUCTIVE DEAFNESS [None]
  - EAR CANAL STENOSIS [None]
  - ENDOCRINE OPHTHALMOPATHY [None]
  - GINGIVAL DISORDER [None]
  - LICHEN SCLEROSUS [None]
  - LICHENIFICATION [None]
  - MASTOIDITIS [None]
  - OTITIS MEDIA CHRONIC [None]
  - SKIN DISORDER [None]
